FAERS Safety Report 21268549 (Version 1)
Quarter: 2022Q3

REPORT INFORMATION
  Report Type: Report from Study
  Country: NL (occurrence: NL)
  Receive Date: 20220830
  Receipt Date: 20220830
  Transmission Date: 20221026
  Serious: Yes (Other)
  Sender: FDA-Public Use
  Company Number: NL-SUN PHARMACEUTICAL INDUSTRIES LTD-2022R1-352686

PATIENT
  Age: 78 Year
  Sex: Female

DRUGS (1)
  1. CAPECITABINE [Suspect]
     Active Substance: CAPECITABINE
     Indication: Colorectal cancer
     Dosage: 1000 MILLIGRAM, 1DOSE/21DAYS (3 CYCLES)
     Route: 065

REACTIONS (3)
  - Hypokalaemia [Unknown]
  - Leukopenia [Unknown]
  - Thrombocytopenia [Unknown]
